FAERS Safety Report 17423958 (Version 1)
Quarter: 2020Q1

REPORT INFORMATION
  Report Type: Spontaneous
  Country: US (occurrence: US)
  Receive Date: 20200217
  Receipt Date: 20200217
  Transmission Date: 20200409
  Serious: No
  Sender: FDA-Public Use
  Company Number: US-TAKEDA-2020TUS009175

PATIENT
  Sex: Female

DRUGS (1)
  1. NINLARO [Suspect]
     Active Substance: IXAZOMIB CITRATE
     Indication: PRODUCT USED FOR UNKNOWN INDICATION
     Dosage: 03 MILLIGRAM
     Route: 048

REACTIONS (4)
  - Product dose omission [Unknown]
  - Accidental exposure to product [Unknown]
  - Product physical issue [Unknown]
  - No adverse event [Unknown]
